FAERS Safety Report 22691073 (Version 2)
Quarter: 2024Q1

REPORT INFORMATION
  Report Type: Spontaneous
  Country: FR (occurrence: FR)
  Receive Date: 20230711
  Receipt Date: 20240131
  Transmission Date: 20240410
  Serious: Yes (Hospitalization, Other)
  Sender: FDA-Public Use
  Company Number: FR-MYLANLABS-2023M1071916

PATIENT
  Age: 82 Year
  Sex: Male

DRUGS (6)
  1. BISOPROLOL [Suspect]
     Active Substance: BISOPROLOL\BISOPROLOL FUMARATE
     Indication: Product used for unknown indication
     Dosage: 2.5 MILLIGRAM, QD
     Route: 065
     Dates: start: 20210518
  2. AMIODARONE [Suspect]
     Active Substance: AMIODARONE
     Indication: Product used for unknown indication
     Dosage: 0.5 DOSAGE FORM, QD
     Route: 065
  3. AMIODARONE [Suspect]
     Active Substance: AMIODARONE
     Dosage: 100 MILLIGRAM, QD (HALF A TABLET)
     Route: 065
  4. ELIQUIS [Concomitant]
     Active Substance: APIXABAN
     Dosage: UNK
     Route: 065
  5. ISRADIPINE [Concomitant]
     Active Substance: ISRADIPINE
     Indication: Blood pressure abnormal
     Dosage: UNK
     Route: 065
  6. AMLODIPINE\INDAPAMIDE [Concomitant]
     Active Substance: AMLODIPINE\INDAPAMIDE
     Dosage: UNK
     Route: 065

REACTIONS (14)
  - Arrhythmia [Unknown]
  - Visual impairment [Unknown]
  - Feeling abnormal [Unknown]
  - Balance disorder [Unknown]
  - Feeling cold [Unknown]
  - Taste disorder [Unknown]
  - Back pain [Recovering/Resolving]
  - Gait disturbance [Unknown]
  - Fatigue [Unknown]
  - Headache [Unknown]
  - Muscular weakness [Unknown]
  - Chest discomfort [Unknown]
  - Osteoarthritis [Unknown]
  - Thyroid disorder [Unknown]

NARRATIVE: CASE EVENT DATE: 20230703
